FAERS Safety Report 7830318-1 (Version None)
Quarter: 2011Q4

REPORT INFORMATION
  Report Type: 
  Country: None (occurrence: None)
  Receive Date: 20111021
  Receipt Date: 20111018
  Transmission Date: 20120403
  Serious: Yes (Hospitalization)
  Sender: FDA-Public Use
  Company Number: US-BRISTOL-MYERS SQUIBB COMPANY-14129845

PATIENT
  Age: 51 Year
  Sex: Male
  Weight: 77 kg

DRUGS (14)
  1. PREVACID [Concomitant]
     Dosage: 1 DOSAGEFORM = 1 TAB
     Route: 048
  2. INSULIN SLIDING SCALE [Concomitant]
     Dosage: SQ AS INSTRUCTED
     Route: 058
  3. AMLODIPINE [Concomitant]
     Route: 048
  4. ASPIRIN [Concomitant]
     Route: 048
  5. MAGNESIUM OXIDE [Concomitant]
     Route: 048
  6. METFORMIN HCL [Concomitant]
     Route: 048
  7. FENTANYL [Concomitant]
     Route: 062
  8. LORAZEPAM [Concomitant]
     Route: 048
  9. CISPLATIN [Suspect]
     Indication: HEAD AND NECK CANCER
     Dosage: START DATE OF FIRST COURSE:18FEB08
     Route: 042
     Dates: start: 20080310, end: 20080310
  10. DOXYCYCLINE [Concomitant]
     Route: 048
  11. HYDROCODONE BITARTRATE [Concomitant]
     Dosage: 2 DOSAGEFORM = 2 TSP
     Route: 048
  12. ERBITUX [Suspect]
     Indication: HEAD AND NECK CANCER
     Dosage: START DATE OF FIRST COURSE:18FEB08
     Route: 042
     Dates: start: 20080331, end: 20080331
  13. LIPITOR [Concomitant]
     Route: 048
  14. LOVAZA [Concomitant]
     Dosage: 1 DOSAGEFORM = 1 CAP
     Route: 048

REACTIONS (4)
  - NAUSEA [None]
  - STOMATITIS [None]
  - ORAL PAIN [None]
  - PYREXIA [None]
